FAERS Safety Report 20589423 (Version 1)
Quarter: 2022Q1

REPORT INFORMATION
  Report Type: Spontaneous
  Country: US (occurrence: US)
  Receive Date: 20220314
  Receipt Date: 20220314
  Transmission Date: 20220423
  Serious: Yes (Hospitalization, Other)
  Sender: FDA-Public Use
  Company Number: US-MLMSERVICE-20220225-3398898-3

PATIENT
  Age: 7 Week
  Sex: Female

DRUGS (1)
  1. PROPRANOLOL [Suspect]
     Active Substance: PROPRANOLOL HYDROCHLORIDE
     Indication: Ulcerated haemangioma
     Route: 048

REACTIONS (3)
  - Condition aggravated [Recovered/Resolved]
  - Product use in unapproved indication [Not Recovered/Not Resolved]
  - Ulcerated haemangioma [Recovered/Resolved]
